FAERS Safety Report 10994510 (Version 1)
Quarter: 2015Q2

REPORT INFORMATION
  Report Type: Other
  Country: DK (occurrence: DK)
  Receive Date: 20150407
  Receipt Date: 20150407
  Transmission Date: 20150821
  Serious: Yes (Death, Other)
  Sender: FDA-Public Use
  Company Number: DK-MYLANLABS-2015M1010756

PATIENT
  Age: 91 Year
  Sex: Male

DRUGS (5)
  1. AMLODIPINE [Concomitant]
     Active Substance: AMLODIPINE BESYLATE
     Indication: HYPERTENSION
     Route: 048
  2. FONDAPARINUX [Suspect]
     Active Substance: FONDAPARINUX
     Indication: THROMBOSIS PROPHYLAXIS
     Dosage: 2.5 MG/0.5ML, QD
     Route: 058
     Dates: start: 20150312, end: 20150314
  3. CENTYL MITE W/POTASSIUM CHLORIDE [Concomitant]
     Indication: HYPERTENSION
     Route: 048
  4. ASPIRIN                            /00002701/ [Suspect]
     Active Substance: ASPIRIN
     Indication: THROMBOSIS PROPHYLAXIS
     Dosage: 75 MG, QD
     Route: 048
     Dates: start: 20150312, end: 20150314
  5. BRILIQUE [Suspect]
     Active Substance: TICAGRELOR
     Indication: THROMBOSIS PROPHYLAXIS
     Dosage: 90 MG, BID
     Route: 048
     Dates: start: 20150312, end: 20150314

REACTIONS (3)
  - Mental impairment [Recovered/Resolved]
  - Subdural haematoma [Fatal]
  - Coma [Recovered/Resolved]

NARRATIVE: CASE EVENT DATE: 20150313
